FAERS Safety Report 5252041-2 (Version None)
Quarter: 2007Q1

REPORT INFORMATION
  Report Type: 
  Country: None (occurrence: None)
  Receive Date: 20070223
  Receipt Date: 20070207
  Transmission Date: 20070707
  Serious: Yes (Hospitalization)
  Sender: FDA-Public Use
  Company Number: 2007BI002317

PATIENT
  Sex: Female

DRUGS (1)
  1. NATALIZUMAB [Suspect]
     Indication: MULTIPLE SCLEROSIS
     Dosage: 300 MG;QM;IV
     Route: 042
     Dates: start: 20061018, end: 20070131

REACTIONS (4)
  - BLADDER DISORDER [None]
  - KLEBSIELLA INFECTION [None]
  - OPPORTUNISTIC INFECTION [None]
  - URINARY TRACT INFECTION [None]
